FAERS Safety Report 15574539 (Version 1)
Quarter: 2018Q4

REPORT INFORMATION
  Report Type: Report from Study
  Country: US (occurrence: US)
  Receive Date: 20181101
  Receipt Date: 20181101
  Transmission Date: 20190205
  Serious: Yes (Hospitalization)
  Sender: FDA-Public Use
  Company Number: US-MISSION PHARMACAL COMPANY-2058287

PATIENT
  Age: 57 Year
  Sex: Female

DRUGS (1)
  1. THIOLA [Suspect]
     Active Substance: TIOPRONIN
     Indication: CYSTINURIA
     Route: 048
     Dates: start: 20181026

REACTIONS (4)
  - Fatigue [Unknown]
  - Pain in jaw [Unknown]
  - Palpitations [Unknown]
  - Chest pain [Unknown]
